FAERS Safety Report 20385563 (Version 1)
Quarter: 2022Q1

REPORT INFORMATION
  Report Type: Spontaneous
  Country: US (occurrence: US)
  Receive Date: 20220127
  Receipt Date: 20220127
  Transmission Date: 20220423
  Serious: No
  Sender: FDA-Public Use
  Company Number: US-ALLERGAN-2110466US

PATIENT
  Age: 6 Decade
  Sex: Female

DRUGS (2)
  1. BOTOX [Suspect]
     Active Substance: ONABOTULINUMTOXINA
     Indication: Migraine
     Dosage: 155 UNITS, SINGLE
     Dates: start: 20200828, end: 20200828
  2. EPIPEN [Concomitant]
     Active Substance: EPINEPHRINE
     Indication: Hypersensitivity

REACTIONS (7)
  - Aphasia [Recovered/Resolved]
  - Swelling [Recovered/Resolved]
  - Throat tightness [Recovered/Resolved]
  - Dyspepsia [Recovered/Resolved]
  - Hypersensitivity [Recovered/Resolved]
  - Dysphagia [Recovered/Resolved]
  - Dyspnoea [Recovered/Resolved]

NARRATIVE: CASE EVENT DATE: 20200830
